FAERS Safety Report 9837567 (Version 1)
Quarter: 2013Q4

REPORT INFORMATION
  Report Type: Spontaneous
  Country: US (occurrence: None)
  Receive Date: 20131125
  Receipt Date: 20131125
  Transmission Date: 20140711
  Serious: Yes (Other)
  Sender: FDA-Public Use
  Company Number: FK201203849

PATIENT
  Age: 61 Year
  Sex: Male

DRUGS (4)
  1. FLUOROURACIL [Suspect]
     Indication: COLORECTAL CANCER METASTATIC
     Dates: start: 20121112, end: 20121112
  2. LEUCOVORIN [Suspect]
     Indication: COLORECTAL CANCER METASTATIC
     Dates: start: 20121112, end: 20121112
  3. IRINOTECAN [Concomitant]
     Dates: start: 20121112, end: 20121112
  4. ZALTRAP [Suspect]
     Indication: COLORECTAL CANCER METASTATIC
     Dates: start: 20121112, end: 20121112

REACTIONS (1)
  - Chest pain [None]
